FAERS Safety Report 7507196-3 (Version None)
Quarter: 2011Q2

REPORT INFORMATION
  Report Type: 
  Country: None (occurrence: None)
  Receive Date: 20110526
  Receipt Date: 20110425
  Transmission Date: 20111010
  Serious: No
  Sender: FDA-Public Use
  Company Number: US-BAYER-2011-037536

PATIENT
  Age: 32 Year
  Sex: Male
  Weight: 71 kg

DRUGS (4)
  1. ONE A DAY ENERGY [Concomitant]
  2. BACLOFEN [Concomitant]
     Dosage: UNK
     Dates: start: 20110422, end: 20110425
  3. ALEVE [Suspect]
     Indication: PAIN
     Dosage: 2 DF, TID
     Route: 048
  4. ATENOLOL [Concomitant]

REACTIONS (1)
  - PAIN [None]
